FAERS Safety Report 5685152-8 (Version None)
Quarter: 2008Q1

REPORT INFORMATION
  Report Type: 
  Country: None (occurrence: None)
  Receive Date: 20080328
  Receipt Date: 20080320
  Transmission Date: 20080703
  Serious: Yes (Other)
  Sender: FDA-Public Use
  Company Number: AU-PFIZER INC-2008023422

PATIENT
  Sex: Male
  Weight: 74 kg

DRUGS (9)
  1. CHAMPIX [Suspect]
     Route: 048
  2. DIABEX [Concomitant]
  3. INSULIN [Concomitant]
  4. TRITACE [Concomitant]
  5. LIPITOR [Concomitant]
  6. ASTRIX [Concomitant]
  7. CIPRAMIL [Concomitant]
     Indication: DEPRESSION
  8. CAMPRAL [Concomitant]
     Indication: ALCOHOLISM
     Route: 048
  9. NOTEN [Concomitant]

REACTIONS (2)
  - BLOOD GLUCOSE INCREASED [None]
  - HYPERPHAGIA [None]
